FAERS Safety Report 10788498 (Version 1)
Quarter: 2015Q1

REPORT INFORMATION
  Report Type: Spontaneous
  Country: GB (occurrence: None)
  Receive Date: 20150210
  Receipt Date: 20150210
  Transmission Date: 20150721
  Serious: Yes (Hospitalization, Other)
  Sender: FDA-Public Use
  Company Number: FK201500566

PATIENT
  Age: 66 Year
  Sex: Male
  Weight: 96.6 kg

DRUGS (7)
  1. ASPIRIN (ACETYLSALICYLIC ACID) [Concomitant]
     Active Substance: ASPIRIN
  2. OCTREOTIDE ACETATE. [Suspect]
     Active Substance: OCTREOTIDE ACETATE
     Indication: PERICARDIAL EFFUSION
     Dates: start: 20150116, end: 20150119
  3. FUROSEMIDE (FUROSEMIDE) [Concomitant]
     Active Substance: FUROSEMIDE
  4. OMEPRAZOLE (OMEPRAZOLE) [Concomitant]
     Active Substance: OMEPRAZOLE
  5. BISOPROLOL (BISOPROLOL) [Concomitant]
     Active Substance: BISOPROLOL
  6. COLCHICINE (COLCHICINE) [Concomitant]
     Active Substance: COLCHICINE
  7. METFORMIN [Concomitant]
     Active Substance: METFORMIN HYDROCHLORIDE

REACTIONS (3)
  - Rash [None]
  - Restless legs syndrome [None]
  - Headache [None]
